FAERS Safety Report 18916070 (Version 1)
Quarter: 2021Q1

REPORT INFORMATION
  Report Type: Spontaneous
  Country: US (occurrence: US)
  Receive Date: 20210219
  Receipt Date: 20210219
  Transmission Date: 20210420
  Serious: No
  Sender: FDA-Public Use
  Company Number: None

PATIENT
  Age: 34 Year
  Sex: Female
  Weight: 72.9 kg

DRUGS (1)
  1. FLAGYL [Suspect]
     Active Substance: METRONIDAZOLE\METRONIDAZOLE HYDROCHLORIDE
     Indication: BACTERIAL VAGINOSIS
     Dates: start: 20210128, end: 20210204

REACTIONS (7)
  - Headache [None]
  - Depression [None]
  - Paraesthesia [None]
  - Anxiety [None]
  - Insomnia [None]
  - Tachycardia [None]
  - Decreased appetite [None]

NARRATIVE: CASE EVENT DATE: 20210131
